FAERS Safety Report 8390984-1 (Version None)
Quarter: 2012Q2

REPORT INFORMATION
  Report Type: 
  Country: None (occurrence: None)
  Receive Date: 20120529
  Receipt Date: 20120521
  Transmission Date: 20120825
  Serious: Yes (Hospitalization)
  Sender: FDA-Public Use
  Company Number: US-BAYER-2012-023795

PATIENT
  Age: 27 Year
  Sex: Female
  Weight: 58.957 kg

DRUGS (15)
  1. DROSPIRENONE AND ETHINYL ESTRADIOL [Suspect]
     Indication: CONTRACEPTION
     Dosage: UNK
     Route: 048
     Dates: start: 20080701, end: 20100301
  2. YASMIN [Suspect]
     Indication: MENSTRUAL CYCLE MANAGEMENT
     Dosage: UNK
     Dates: start: 20070901, end: 20080601
  3. IBUPROFEN [Concomitant]
  4. HYDROXYUREA [Concomitant]
  5. DROSPIRENONE AND ETHINYL ESTRADIOL [Suspect]
     Indication: MENSTRUAL CYCLE MANAGEMENT
     Dosage: UNK
     Dates: start: 20100209, end: 20100301
  6. YASMIN [Suspect]
     Indication: ACNE
     Dosage: UNK
     Dates: start: 20090701
  7. TOPIRAMATE [Concomitant]
     Indication: MIGRAINE
     Dosage: UNK
     Dates: start: 20100225, end: 20100301
  8. DROSPIRENONE AND ETHINYL ESTRADIOL [Suspect]
     Indication: ACNE
  9. TRAMADOL HCL [Concomitant]
     Indication: MIGRAINE
     Dosage: UNK
     Dates: start: 20100226, end: 20100301
  10. BUTALBITAL ACETAMINOPHEN AND CAFFEINE [Concomitant]
     Indication: MIGRAINE
     Dosage: UNK
     Dates: start: 20100225, end: 20100301
  11. RELPAX [Concomitant]
     Indication: MIGRAINE
     Dosage: UNK
     Dates: start: 20100220, end: 20100226
  12. OXYCODONE HCL [Concomitant]
     Indication: MIGRAINE
     Dosage: UNK
     Dates: start: 20100218, end: 20100226
  13. METHYLPREDNISOLONE [Concomitant]
     Dosage: 4 MG, UNK
  14. YASMIN [Suspect]
     Indication: CONTRACEPTION
     Dosage: UNK
     Dates: start: 20041101, end: 20080601
  15. NEXIUM [Concomitant]
     Indication: NAUSEA
     Dosage: UNK
     Dates: start: 20100227, end: 20100301

REACTIONS (4)
  - CEREBRAL HAEMORRHAGE [None]
  - CAVERNOUS SINUS THROMBOSIS [None]
  - PULMONARY EMBOLISM [None]
  - DEEP VEIN THROMBOSIS [None]
